FAERS Safety Report 23917950 (Version 3)
Quarter: 2025Q3

REPORT INFORMATION
  Report Type: Spontaneous
  Country: US (occurrence: US)
  Receive Date: 20240530
  Receipt Date: 20250717
  Transmission Date: 20251020
  Serious: Yes (Hospitalization)
  Sender: HISAMITSU PHARMACEUTICAL CO., INC.
  Company Number: US-HISAMITSU PHARMACEUTICAL CO., INC.-2024-NOV-US000582

PATIENT
  Sex: Female
  Weight: 65.76 kg

DRUGS (3)
  1. SECUADO [Suspect]
     Active Substance: ASENAPINE
     Indication: Vascular dementia
     Route: 062
     Dates: start: 2023
  2. SECUADO [Suspect]
     Active Substance: ASENAPINE
     Indication: Dementia Alzheimer^s type
  3. SECUADO [Suspect]
     Active Substance: ASENAPINE
     Indication: Off label use

REACTIONS (13)
  - Multiple organ dysfunction syndrome [Recovering/Resolving]
  - Hypoglycaemia [Recovering/Resolving]
  - Hypothermia [Recovering/Resolving]
  - Urinary tract infection [Recovering/Resolving]
  - Troponin increased [Recovering/Resolving]
  - Encephalopathy [Recovering/Resolving]
  - Dehydration [Recovering/Resolving]
  - Confusional state [Recovering/Resolving]
  - Movement disorder [Unknown]
  - Hypersomnia [Recovering/Resolving]
  - Lethargy [Recovering/Resolving]
  - Device use issue [Recovered/Resolved]
  - Off label use [Not Recovered/Not Resolved]

NARRATIVE: CASE EVENT DATE: 20230101
